FAERS Safety Report 10483487 (Version 1)
Quarter: 2014Q3

REPORT INFORMATION
  Report Type: Spontaneous
  Country: US (occurrence: US)
  Receive Date: 20140930
  Receipt Date: 20140930
  Transmission Date: 20150326
  Serious: Yes (Other)
  Sender: FDA-Public Use
  Company Number: US-JNJFOC-20140917947

PATIENT
  Sex: Male

DRUGS (1)
  1. VISINE A.C. [Suspect]
     Active Substance: TETRAHYDROZOLINE HYDROCHLORIDE\ZINC SULFATE
     Indication: EYE HAEMORRHAGE
     Dosage: ONCE
     Route: 047
     Dates: start: 20140915

REACTIONS (4)
  - Eye irritation [Unknown]
  - Off label use [Unknown]
  - Eye pain [Unknown]
  - Convulsion [Unknown]

NARRATIVE: CASE EVENT DATE: 20140915
